FAERS Safety Report 21289045 (Version 1)
Quarter: 2022Q3

REPORT INFORMATION
  Report Type: Spontaneous
  Country: US (occurrence: US)
  Receive Date: 20220902
  Receipt Date: 20220902
  Transmission Date: 20221026
  Serious: No
  Sender: FDA-Public Use
  Company Number: US-ABBVIE-22K-163-4377304-00

PATIENT
  Age: 77 Year
  Sex: Male

DRUGS (6)
  1. IMBRUVICA [Interacting]
     Active Substance: IBRUTINIB
     Indication: Lymphocytic leukaemia
     Route: 048
     Dates: start: 2019, end: 202202
  2. IMBRUVICA [Interacting]
     Active Substance: IBRUTINIB
     Route: 048
     Dates: start: 2022
  3. REMDESIVIR [Suspect]
     Active Substance: REMDESIVIR
     Indication: COVID-19
     Route: 065
  4. MODERNA COVID-19 VACCINE [Suspect]
     Active Substance: ELASOMERAN
     Indication: COVID-19 immunisation
     Dosage: FIRST DOSE
     Route: 030
  5. MODERNA COVID-19 VACCINE [Suspect]
     Active Substance: ELASOMERAN
     Dosage: SECOND DOSE
     Route: 030
  6. MODERNA COVID-19 VACCINE [Suspect]
     Active Substance: ELASOMERAN
     Dosage: THIRD DOSE
     Route: 030

REACTIONS (3)
  - Influenza like illness [Recovered/Resolved]
  - Drug interaction [Recovered/Resolved]
  - COVID-19 [Recovered/Resolved]

NARRATIVE: CASE EVENT DATE: 20220201
